FAERS Safety Report 7041884-0 (Version None)
Quarter: 2010Q4

REPORT INFORMATION
  Report Type: 
  Country: None (occurrence: None)
  Receive Date: 20101013
  Receipt Date: 20100514
  Transmission Date: 20110411
  Serious: No
  Sender: FDA-Public Use
  Company Number: US-ASTRAZENECA-2010SE09392

PATIENT
  Age: 28430 Day
  Sex: Female
  Weight: 61.2 kg

DRUGS (2)
  1. SYMBICORT [Suspect]
     Indication: WHEEZING
     Dosage: TOTAL DAILY DOSE 640 MICROGRAM
     Route: 055
     Dates: start: 20100302
  2. SYMBICORT [Suspect]
     Indication: ASTHMA
     Dosage: TOTAL DAILY DOSE 640 MICROGRAM
     Route: 055
     Dates: start: 20100302

REACTIONS (8)
  - ABDOMINAL PAIN UPPER [None]
  - CHOLELITHIASIS [None]
  - DRY THROAT [None]
  - HEPATIC ENZYME INCREASED [None]
  - INCORRECT DOSE ADMINISTERED [None]
  - LARYNGITIS [None]
  - NERVOUSNESS [None]
  - TREMOR [None]
